FAERS Safety Report 24864118 (Version 1)
Quarter: 2025Q1

REPORT INFORMATION
  Report Type: Spontaneous
  Country: AU (occurrence: AU)
  Receive Date: 20250120
  Receipt Date: 20250120
  Transmission Date: 20250408
  Serious: Yes (Hospitalization)
  Sender: BAUSCH AND LOMB
  Company Number: AU-BAUSCH-BL-2025-000247

PATIENT
  Age: 84 Year
  Sex: Female

DRUGS (3)
  1. MESTINON [Suspect]
     Active Substance: PYRIDOSTIGMINE BROMIDE
     Indication: Muscular weakness
     Dosage: 60MG 4 TIMES A DAY
     Dates: start: 20231031
  2. MESTINON [Suspect]
     Active Substance: PYRIDOSTIGMINE BROMIDE
     Route: 065
  3. MESTINON [Suspect]
     Active Substance: PYRIDOSTIGMINE BROMIDE
     Route: 065
     Dates: end: 20241211

REACTIONS (10)
  - COVID-19 [Unknown]
  - Respiratory tract infection [Unknown]
  - Glossodynia [Unknown]
  - Oral pain [Recovering/Resolving]
  - Illness [Unknown]
  - Dysphagia [Not Recovered/Not Resolved]
  - Wheezing [Unknown]
  - Salivary hypersecretion [Recovering/Resolving]
  - Nausea [Recovering/Resolving]
  - Product dose omission issue [Unknown]

NARRATIVE: CASE EVENT DATE: 20230101
